FAERS Safety Report 6382612-1 (Version None)
Quarter: 2009Q3

REPORT INFORMATION
  Report Type: 
  Country: None (occurrence: None)
  Receive Date: 20090928
  Receipt Date: 20090928
  Transmission Date: 20100115
  Serious: No
  Sender: FDA-Public Use
  Company Number: None

PATIENT
  Age: 55 Year
  Sex: Female

DRUGS (2)
  1. DAPTOMYCIN [Suspect]
     Dosage: 450 MG DAILY
  2. MEROPENEM [Concomitant]

REACTIONS (1)
  - INTERSTITIAL LUNG DISEASE [None]
